FAERS Safety Report 6749151-7 (Version None)
Quarter: 2010Q2

REPORT INFORMATION
  Report Type: 
  Country: None (occurrence: None)
  Receive Date: 20100601
  Receipt Date: 20100531
  Transmission Date: 20101027
  Serious: Yes (Other)
  Sender: FDA-Public Use
  Company Number: PL-BAXTER-2010BH014226

PATIENT
  Age: 50 Year
  Sex: Female

DRUGS (3)
  1. TISSUCOL/TISSEEL KIT STIM3 [Suspect]
     Indication: INTRACRANIAL HYPOTENSION
     Route: 061
     Dates: start: 20100518, end: 20100518
  2. TERTENSIF - SLOW RELEASE [Concomitant]
     Indication: HYPERTENSION
     Route: 048
  3. EBRANTIL [Concomitant]
     Indication: HYPERTENSION

REACTIONS (1)
  - DRUG EFFECT DELAYED [None]
